FAERS Safety Report 20062489 (Version 1)
Quarter: 2021Q4

REPORT INFORMATION
  Report Type: Report from Study
  Country: US (occurrence: US)
  Receive Date: 20211112
  Receipt Date: 20211112
  Transmission Date: 20220304
  Serious: Yes (Hospitalization, Other)
  Sender: FDA-Public Use
  Company Number: US-BoehringerIngelheim-2021-BI-118461

PATIENT
  Age: 64 Year
  Sex: Female

DRUGS (1)
  1. GILOTRIF [Suspect]
     Active Substance: AFATINIB
     Indication: Non-small cell lung cancer
     Dosage: GILOTRIF 40MG ORALLY DAILY
     Route: 048
     Dates: start: 20210717

REACTIONS (10)
  - Hepatic neoplasm [Unknown]
  - Skin lesion [Not Recovered/Not Resolved]
  - Sleep disorder [Recovering/Resolving]
  - Back pain [Not Recovered/Not Resolved]
  - Skin ulcer haemorrhage [Not Recovered/Not Resolved]
  - Rash [Recovering/Resolving]
  - Wheezing [Not Recovered/Not Resolved]
  - Diarrhoea [Unknown]
  - Dry mouth [Unknown]
  - Dyspnoea [Unknown]

NARRATIVE: CASE EVENT DATE: 20210701
